FAERS Safety Report 16184671 (Version 1)
Quarter: 2019Q2

REPORT INFORMATION
  Report Type: Spontaneous
  Country: US (occurrence: US)
  Receive Date: 20190308
  Receipt Date: 20190308
  Transmission Date: 20190711
  Serious: No
  Sender: FDA-Public Use
  Company Number: None

PATIENT
  Sex: Male

DRUGS (1)
  1. TALTZ [Suspect]
     Active Substance: IXEKIZUMAB
     Indication: PSORIASIS
     Route: 058
     Dates: start: 20190217

REACTIONS (6)
  - Oropharyngeal pain [None]
  - Rhinorrhoea [None]
  - Eye infection [None]
  - Ocular hyperaemia [None]
  - Taste disorder [None]
  - Cough [None]
